FAERS Safety Report 21215066 (Version 1)
Quarter: 2022Q3

REPORT INFORMATION
  Report Type: Spontaneous
  Country: US (occurrence: US)
  Receive Date: 20220816
  Receipt Date: 20220816
  Transmission Date: 20221026
  Serious: Yes (Death, Other)
  Sender: FDA-Public Use
  Company Number: US-SA-SAC20220812001443

PATIENT
  Age: 73 Year
  Sex: Male

DRUGS (1)
  1. ZANTAC [Suspect]
     Active Substance: RANITIDINE HYDROCHLORIDE
     Indication: Gastrooesophageal reflux disease
     Dosage: 150 MG, QD
     Dates: start: 200801, end: 202001

REACTIONS (6)
  - Oesophageal carcinoma [Fatal]
  - Gastrointestinal carcinoma [Fatal]
  - Renal cancer [Fatal]
  - Hepatic cancer [Fatal]
  - Pancreatic carcinoma [Fatal]
  - Gastric cancer [Fatal]

NARRATIVE: CASE EVENT DATE: 20200302
